FAERS Safety Report 8771949 (Version 3)
Quarter: 2012Q4

REPORT INFORMATION
  Report Type: Report from Study
  Country: JP (occurrence: JP)
  Receive Date: 20120906
  Receipt Date: 20121106
  Transmission Date: 20130627
  Serious: Yes (Other)
  Sender: FDA-Public Use
  Company Number: JP-JNJFOC-20120900042

PATIENT
  Age: 82 Year
  Sex: Female
  Weight: 43 kg

DRUGS (9)
  1. DUROTEP [Suspect]
     Indication: PAIN
     Route: 062
     Dates: start: 20111024, end: 20111101
  2. MORPHINE [Suspect]
     Indication: PRODUCT USED FOR UNKNOWN INDICATION
     Route: 065
     Dates: start: 20110920, end: 20111002
  3. MORPHINE [Suspect]
     Indication: PRODUCT USED FOR UNKNOWN INDICATION
     Route: 065
     Dates: start: 20111003, end: 20111023
  4. CELECOX [Concomitant]
     Indication: PAIN
     Route: 048
     Dates: start: 20111024, end: 20111115
  5. MAGLAX [Concomitant]
     Indication: PROPHYLAXIS
     Route: 048
     Dates: start: 20111024
  6. TRAVELMIN [Concomitant]
     Indication: PROPHYLAXIS
     Route: 048
     Dates: start: 20111024, end: 20111221
  7. CYMBALTA [Concomitant]
     Indication: PAIN
     Route: 048
     Dates: start: 20110624, end: 20111221
  8. DAIKENTYUTO [Concomitant]
     Indication: PROPHYLAXIS
     Dosage: as needed
     Route: 048
     Dates: start: 20111003, end: 20111115
  9. MORPHINE HYDROCHLORIDE [Concomitant]
     Indication: PAIN
     Route: 048
     Dates: start: 20111101

REACTIONS (1)
  - Delirium [Recovered/Resolved]
